FAERS Safety Report 10256533 (Version 1)
Quarter: 2014Q2

REPORT INFORMATION
  Report Type: Report from Study
  Country: BR (occurrence: BR)
  Receive Date: 20140624
  Receipt Date: 20140624
  Transmission Date: 20141212
  Serious: Yes (Death, Hospitalization, Other)
  Sender: FDA-Public Use
  Company Number: BR-JNJFOC-20130602590

PATIENT
  Age: 79 Year
  Sex: Male

DRUGS (2)
  1. XARELTO [Suspect]
     Indication: THROMBOSIS
     Route: 048
     Dates: start: 20130216, end: 20130519
  2. XARELTO [Suspect]
     Indication: ANTICOAGULANT THERAPY
     Route: 048
     Dates: start: 20130216, end: 20130519

REACTIONS (6)
  - Acute myocardial infarction [Fatal]
  - Embolic stroke [Unknown]
  - Cardiogenic shock [Unknown]
  - Endocarditis bacterial [Unknown]
  - Renal failure chronic [Unknown]
  - Arteriosclerosis coronary artery [Unknown]
